FAERS Safety Report 14126026 (Version 2)
Quarter: 2017Q4

REPORT INFORMATION
  Report Type: Spontaneous
  Country: US (occurrence: US)
  Receive Date: 20171025
  Receipt Date: 20171130
  Transmission Date: 20180321
  Serious: No
  Sender: FDA-Public Use
  Company Number: US-BAYER-2017-204287

PATIENT
  Age: 88 Year
  Sex: Female
  Weight: 72 kg

DRUGS (1)
  1. MIRALAX [Suspect]
     Active Substance: POLYETHYLENE GLYCOL 3350
     Indication: GASTROINTESTINAL DISORDER
     Dosage: 1/2 DOSE, QOD
     Route: 048

REACTIONS (6)
  - Incorrect drug administration duration [Unknown]
  - Retching [Unknown]
  - Product taste abnormal [Unknown]
  - Poor quality drug administered [None]
  - Product odour abnormal [None]
  - Underdose [Unknown]
